FAERS Safety Report 8614325-7 (Version None)
Quarter: 2012Q3

REPORT INFORMATION
  Report Type: 
  Country: None (occurrence: None)
  Receive Date: 20120823
  Receipt Date: 20120817
  Transmission Date: 20120928
  Serious: Yes (Other)
  Sender: FDA-Public Use
  Company Number: GB-MPIJNJ-2012-05878

PATIENT

DRUGS (1)
  1. VELCADE [Suspect]
     Indication: MULTIPLE MYELOMA
     Dosage: UNK, CYCLIC
     Route: 058
     Dates: start: 20120601

REACTIONS (4)
  - OFF LABEL USE [None]
  - NEUROPATHY PERIPHERAL [None]
  - SKIN SENSITISATION [None]
  - GLOSSODYNIA [None]
